FAERS Safety Report 18833966 (Version 1)
Quarter: 2021Q1

REPORT INFORMATION
  Report Type: Spontaneous
  Country: RU (occurrence: RU)
  Receive Date: 20210203
  Receipt Date: 20210203
  Transmission Date: 20210419
  Serious: Yes (Other)
  Sender: FDA-Public Use
  Company Number: RU-009507513-2102RUS000381

PATIENT
  Age: 60 Year
  Sex: Male
  Weight: 74 kg

DRUGS (2)
  1. CUBICIN [Suspect]
     Active Substance: DAPTOMYCIN
     Route: 042
     Dates: start: 20201010, end: 20201013
  2. LINEZOLID. [Suspect]
     Active Substance: LINEZOLID
     Route: 042
     Dates: start: 20200930, end: 20201009

REACTIONS (2)
  - Hepatitis toxic [Recovering/Resolving]
  - Thrombocytopenia [Not Recovered/Not Resolved]

NARRATIVE: CASE EVENT DATE: 20201009
